FAERS Safety Report 17926662 (Version 1)
Quarter: 2020Q2

REPORT INFORMATION
  Report Type: Spontaneous
  Country: US (occurrence: US)
  Receive Date: 20200623
  Receipt Date: 20200623
  Transmission Date: 20200714
  Serious: No
  Sender: FDA-Public Use
  Company Number: US-TARO-2020TAR00876

PATIENT
  Age: 76 Year
  Sex: Male

DRUGS (2)
  1. BETAMETHASONE DIPROPIONATE CREAM USP 0.05% [Suspect]
     Active Substance: BETAMETHASONE DIPROPIONATE
     Dosage: UNK, (INADVERTENTLY PUT THE CREAM IN EAR)
     Route: 001
  2. BETAMETHASONE DIPROPIONATE CREAM USP 0.05% [Suspect]
     Active Substance: BETAMETHASONE DIPROPIONATE
     Indication: PRODUCT USED FOR UNKNOWN INDICATION
     Dosage: UNK
     Route: 065

REACTIONS (2)
  - Hypoacusis [Recovered/Resolved]
  - Accidental exposure to product [Unknown]

NARRATIVE: CASE EVENT DATE: 202004
